FAERS Safety Report 11857193 (Version 2)
Quarter: 2016Q3

REPORT INFORMATION
  Report Type: Spontaneous
  Country: DE (occurrence: DE)
  Receive Date: 20151221
  Receipt Date: 20160923
  Transmission Date: 20161109
  Serious: Yes (Death)
  Sender: FDA-Public Use
  Company Number: DE-TEVA-618441GER

PATIENT
  Age: 43 Year
  Sex: Male
  Weight: 65 kg

DRUGS (3)
  1. BIPERIDEN [Concomitant]
     Active Substance: BIPERIDEN
     Indication: TREMOR
     Route: 048
     Dates: start: 20131115
  2. APYDAN [Concomitant]
     Active Substance: OXCARBAZEPINE
     Indication: EPILEPSY
     Route: 048
     Dates: start: 20140512
  3. OLANZAPIN [Suspect]
     Active Substance: OLANZAPINE
     Indication: SCHIZOPHRENIA
     Route: 048
     Dates: start: 20131004

REACTIONS (2)
  - Sudden death [Fatal]
  - Death [Fatal]

NARRATIVE: CASE EVENT DATE: 20151111
